FAERS Safety Report 23182700 (Version 1)
Quarter: 2023Q4

REPORT INFORMATION
  Report Type: Spontaneous
  Country: CA (occurrence: CA)
  Receive Date: 20231114
  Receipt Date: 20231114
  Transmission Date: 20240110
  Serious: Yes (Hospitalization)
  Sender: FDA-Public Use
  Company Number: CA-PFIZER INC-202300362666

PATIENT
  Age: 65 Year
  Sex: Female

DRUGS (9)
  1. ZITHROMAX [Suspect]
     Active Substance: AZITHROMYCIN DIHYDRATE
     Route: 065
  2. ZITHROMAX [Suspect]
     Active Substance: AZITHROMYCIN DIHYDRATE
     Dosage: UNK
     Route: 065
  3. ALVESCO [Suspect]
     Active Substance: CICLESONIDE
     Dosage: 2 DF, 1X/DAY
     Route: 055
  4. ATROVENT [Suspect]
     Active Substance: IPRATROPIUM BROMIDE
     Dosage: 20 UG, 1X/DAY
  5. RUPATADINE [Suspect]
     Active Substance: RUPATADINE
     Indication: Multiple allergies
     Route: 065
  6. ALBUTEROL [Suspect]
     Active Substance: ALBUTEROL
     Route: 065
  7. SYMBICORT [Suspect]
     Active Substance: BUDESONIDE\FORMOTEROL FUMARATE DIHYDRATE
     Route: 055
  8. SYMBICORT [Suspect]
     Active Substance: BUDESONIDE\FORMOTEROL FUMARATE DIHYDRATE
     Route: 065
  9. SYMBICORT [Suspect]
     Active Substance: BUDESONIDE\FORMOTEROL FUMARATE DIHYDRATE
     Dosage: UNK
     Route: 065

REACTIONS (1)
  - Asthma [Unknown]
